FAERS Safety Report 14772042 (Version 2)
Quarter: 2018Q2

REPORT INFORMATION
  Report Type: Report from Study
  Country: None (occurrence: ZA)
  Receive Date: 20180417
  Receipt Date: 20180507
  Transmission Date: 20180711
  Serious: Yes (Hospitalization)
  Sender: FDA-Public Use
  Company Number: ZA-ABBVIE-18K-143-2325371-00

PATIENT
  Age: 34 Year
  Sex: Female

DRUGS (3)
  1. HUMIRA [Suspect]
     Active Substance: ADALIMUMAB
     Indication: COLITIS ULCERATIVE
     Dosage: WEEK 0
     Route: 058
  2. HUMIRA [Suspect]
     Active Substance: ADALIMUMAB
     Dosage: WEEK 4
     Route: 058
  3. HUMIRA [Suspect]
     Active Substance: ADALIMUMAB
     Dosage: WEEK 2
     Route: 058

REACTIONS (4)
  - Headache [Recovered/Resolved]
  - Headache [Unknown]
  - Haemoglobin decreased [Unknown]
  - Blood iron decreased [Unknown]

NARRATIVE: CASE EVENT DATE: 201803
